FAERS Safety Report 9911450 (Version 1)
Quarter: 2014Q1

REPORT INFORMATION
  Report Type: Spontaneous
  Country: CA (occurrence: CA)
  Receive Date: 20140219
  Receipt Date: 20140219
  Transmission Date: 20141002
  Serious: No
  Sender: FDA-Public Use
  Company Number: PHHY2014CA019989

PATIENT
  Age: 75 Year
  Sex: Female

DRUGS (1)
  1. ESTRADOT [Suspect]
     Dosage: UNK UKN, UNK
     Route: 062

REACTIONS (2)
  - Emotional disorder [Unknown]
  - Inappropriate schedule of drug administration [Unknown]
